FAERS Safety Report 11406771 (Version 1)
Quarter: 2015Q3

REPORT INFORMATION
  Report Type: Report from Study
  Country: US (occurrence: US)
  Receive Date: 20150821
  Receipt Date: 20150821
  Transmission Date: 20151125
  Serious: Yes (Death, Hospitalization, Other)
  Sender: FDA-Public Use
  Company Number: US-ASTELLAS-2015US022248

PATIENT
  Sex: Male

DRUGS (10)
  1. RETALIN [Concomitant]
     Indication: PRODUCT USED FOR UNKNOWN INDICATION
     Dosage: UNK UNK, UNKNOWN FREQ.
     Route: 065
  2. AVASTIN [Suspect]
     Active Substance: BEVACIZUMAB
     Indication: MALIGNANT URINARY TRACT NEOPLASM
     Route: 042
     Dates: start: 20050504
  3. SOLU-MEDROL [Concomitant]
     Active Substance: METHYLPREDNISOLONE SODIUM SUCCINATE
     Indication: PRODUCT USED FOR UNKNOWN INDICATION
     Route: 065
  4. INTERFERON [Concomitant]
     Active Substance: INTERFERON
     Indication: PRODUCT USED FOR UNKNOWN INDICATION
     Dosage: UNK UNK, UNKNOWN FREQ.
     Route: 065
  5. ERLOTINIB [Suspect]
     Active Substance: ERLOTINIB
     Route: 048
     Dates: start: 20050914
  6. ERLOTINIB [Suspect]
     Active Substance: ERLOTINIB
     Dosage: 50 MG, 1 IN 1 DAY
     Route: 048
     Dates: start: 20050929
  7. AVASTIN [Suspect]
     Active Substance: BEVACIZUMAB
     Route: 042
  8. ERLOTINIB [Suspect]
     Active Substance: ERLOTINIB
     Indication: MALIGNANT URINARY TRACT NEOPLASM
     Route: 048
     Dates: end: 20050907
  9. AVASTIN [Suspect]
     Active Substance: BEVACIZUMAB
     Route: 065
  10. INTERLEUKINS [Concomitant]
     Active Substance: UNSPECIFIED INGREDIENT
     Indication: PRODUCT USED FOR UNKNOWN INDICATION
     Dosage: UNK UNK, UNKNOWN FREQ.
     Route: 065

REACTIONS (21)
  - Nodule [Unknown]
  - Rash erythematous [Unknown]
  - Cerebrovascular accident [Unknown]
  - Depression [Unknown]
  - Death [Fatal]
  - Constipation [Unknown]
  - Somnolence [Unknown]
  - Chest pain [Recovered/Resolved]
  - Fatigue [Unknown]
  - Inflammation [Unknown]
  - Rash [Recovered/Resolved]
  - Herpes zoster [Unknown]
  - Pneumonia [Unknown]
  - Malignant neoplasm progression [Unknown]
  - Dyspnoea [Unknown]
  - Anaemia [Unknown]
  - Atelectasis [Unknown]
  - Pain in extremity [Unknown]
  - Off label use [Unknown]
  - Dehydration [Unknown]
  - Pyrexia [Unknown]
